FAERS Safety Report 22093582 (Version 1)
Quarter: 2023Q1

REPORT INFORMATION
  Report Type: Spontaneous
  Country: US (occurrence: None)
  Receive Date: 20230313
  Receipt Date: 20230313
  Transmission Date: 20230418
  Serious: Yes (Life-Threatening, Hospitalization)
  Sender: FDA-Public Use
  Company Number: None

PATIENT
  Age: 55 Year
  Sex: Female
  Weight: 69.9 kg

DRUGS (1)
  1. HEPARIN [Suspect]
     Active Substance: HEPARIN SODIUM
     Indication: Pulmonary embolism
     Dosage: OTHER FREQUENCY : 850 UNITS/HOUR;?
     Route: 041
     Dates: start: 20230306, end: 20230307

REACTIONS (5)
  - Metastases to central nervous system [None]
  - Cerebral haemorrhage [None]
  - Brain herniation [None]
  - Anticoagulation drug level above therapeutic [None]
  - Activated partial thromboplastin time prolonged [None]

NARRATIVE: CASE EVENT DATE: 20230307
